FAERS Safety Report 21891541 (Version 2)
Quarter: 2023Q2

REPORT INFORMATION
  Report Type: Spontaneous
  Country: US (occurrence: US)
  Receive Date: 20230120
  Receipt Date: 20230426
  Transmission Date: 20230721
  Serious: No
  Sender: FDA-Public Use
  Company Number: US-BRISTOL-MYERS SQUIBB COMPANY-2023-009669

PATIENT
  Age: 49 Year
  Sex: Male
  Weight: 81.3 kg

DRUGS (1)
  1. IDHIFA [Suspect]
     Active Substance: ENASIDENIB MESYLATE
     Indication: Acute myeloid leukaemia
     Dates: start: 20221128

REACTIONS (5)
  - Diarrhoea [Unknown]
  - Dizziness [Unknown]
  - Nasopharyngitis [Unknown]
  - Fatigue [Unknown]
  - Dyspnoea [Unknown]
